FAERS Safety Report 16860740 (Version 1)
Quarter: 2019Q3

REPORT INFORMATION
  Report Type: Spontaneous
  Country: IN (occurrence: IN)
  Receive Date: 20190927
  Receipt Date: 20190927
  Transmission Date: 20191005
  Serious: Yes (Other)
  Sender: FDA-Public Use
  Company Number: IN-ALLERGAN-1938712US

PATIENT
  Sex: Male

DRUGS (2)
  1. OZURDEX [Suspect]
     Active Substance: DEXAMETHASONE
     Indication: RETINAL VEIN OCCLUSION
     Dosage: 0.7 MG, SINGLE
     Route: 031
  2. BROMFENAC [Concomitant]
     Active Substance: BROMFENAC SODIUM
     Dosage: 2WEEKS, TWICE DAILY
     Route: 047

REACTIONS (1)
  - Vitritis [Not Recovered/Not Resolved]
